FAERS Safety Report 5708314-X (Version None)
Quarter: 2008Q2

REPORT INFORMATION
  Report Type: 
  Country: None (occurrence: None)
  Receive Date: 20080414
  Receipt Date: 20080402
  Transmission Date: 20081010
  Serious: Yes (Death)
  Sender: FDA-Public Use
  Company Number: GXKR2006CA02108

PATIENT
  Age: 48 Year
  Sex: Male

DRUGS (11)
  1. FUROSEMIDE [Suspect]
     Indication: ASCITES
  2. SPIRONOLACTONE [Suspect]
     Indication: ASCITES
  3. NAPROXEN [Suspect]
     Indication: BACK PAIN
     Dosage: 375 MG, TID
  4. TENOFOVIR DISOPROXIL FUMARATE [Suspect]
     Indication: HIV INFECTION
  5. DIDANOSINE [Suspect]
     Indication: HIV INFECTION
     Dosage: 250 MG
  6. LOPINAVIR W/RITONAVIR (LOPINAVIR, RITONAVIR) [Concomitant]
  7. CO-TRIMOXAZOLE (CO-TRIMOXAZOLE) [Concomitant]
  8. HYDROMORPHONE HCL [Concomitant]
  9. QUININE (QUININE) [Concomitant]
  10. OMEPRAZOLE [Concomitant]
  11. DIMENHYDRINATE [Concomitant]

REACTIONS (4)
  - BLOOD PHOSPHORUS DECREASED [None]
  - BLOOD POTASSIUM INCREASED [None]
  - RENAL FAILURE [None]
  - RENAL TUBULAR NECROSIS [None]
